FAERS Safety Report 11835123 (Version 8)
Quarter: 2016Q3

REPORT INFORMATION
  Report Type: Spontaneous
  Country: BR (occurrence: BR)
  Receive Date: 20151215
  Receipt Date: 20160903
  Transmission Date: 20161109
  Serious: Yes (Other)
  Sender: FDA-Public Use
  Company Number: BR-AMGEN-BRASP2015132417

PATIENT
  Age: 51 Year
  Sex: Female
  Weight: 81 kg

DRUGS (28)
  1. METHOTREXATE. [Concomitant]
     Active Substance: METHOTREXATE
     Dosage: 8 TABLETS OF 2.5MG (20 MG), WEEKLY
  2. CALCIUM [Concomitant]
     Active Substance: CALCIUM
     Dosage: 4 TABLETS OF 1200MG (4800 MG), DAILY
  3. PREDNISOLONE. [Concomitant]
     Active Substance: PREDNISOLONE
     Dosage: UNK
  4. PREDNISOLONE. [Concomitant]
     Active Substance: PREDNISOLONE
     Dosage: UNK
  5. ENBREL [Suspect]
     Active Substance: ETANERCEPT
     Indication: RHEUMATOID ARTHRITIS
     Dosage: 50 MG, ONCE WEEKLY
     Route: 058
     Dates: start: 20140702
  6. FOLIC ACID. [Concomitant]
     Active Substance: FOLIC ACID
     Dosage: 1 TABLET (UNSPECIFIED DOSE), 3X/WEEK
  7. PREDNISOLONE. [Concomitant]
     Active Substance: PREDNISOLONE
     Dosage: UNK
  8. PREDNISOLONE. [Concomitant]
     Active Substance: PREDNISOLONE
     Dosage: UNK
  9. PREDNISONE. [Concomitant]
     Active Substance: PREDNISONE
     Dosage: ONE TABLET (5 MG), WEEKLY
  10. CALCIUM [Concomitant]
     Active Substance: CALCIUM
     Dosage: 4 TABLETS OF 1200MG (4800 MG), DAILY
  11. CALCIUM [Concomitant]
     Active Substance: CALCIUM
     Dosage: 4 TABLETS OF 1200MG (4800 MG), DAILY
  12. FOLIC ACID. [Concomitant]
     Active Substance: FOLIC ACID
     Dosage: 1 TABLET (UNSPECIFIED DOSE), 3X/WEEK
  13. FOLIC ACID. [Concomitant]
     Active Substance: FOLIC ACID
     Dosage: 1 TABLET (UNSPECIFIED DOSE), 3X/WEEK
  14. FOLIC ACID. [Concomitant]
     Active Substance: FOLIC ACID
     Dosage: 1 TABLET (UNSPECIFIED DOSE), 3X/WEEK
  15. DEPURA [Concomitant]
     Active Substance: CHOLECALCIFEROL
     Dosage: UNK
  16. PREDNISONE. [Concomitant]
     Active Substance: PREDNISONE
     Dosage: ONE TABLET (5 MG), WEEKLY
  17. PREDNISONE. [Concomitant]
     Active Substance: PREDNISONE
     Dosage: ONE TABLET (5 MG), WEEKLY
  18. METHOTREXATE. [Concomitant]
     Active Substance: METHOTREXATE
     Dosage: 8 TABLETS OF 2.5MG (20 MG), WEEKLY
  19. PREDNISOLONE. [Concomitant]
     Active Substance: PREDNISOLONE
     Dosage: UNK
  20. METHOTREXATE. [Concomitant]
     Active Substance: METHOTREXATE
     Dosage: 8 TABLETS OF 2.5MG (20 MG), WEEKLY
  21. CALCIUM [Concomitant]
     Active Substance: CALCIUM
     Dosage: 4 TABLETS OF 1200MG (4800 MG), DAILY
  22. PREDNISONE. [Concomitant]
     Active Substance: PREDNISONE
     Dosage: ONE TABLET (5 MG), DAILY
  23. CALCIUM [Concomitant]
     Active Substance: CALCIUM
     Dosage: 4 TABLETS OF 1200MG (4800 MG), DAILY
  24. FOLIC ACID. [Concomitant]
     Active Substance: FOLIC ACID
     Dosage: 1 TABLET (UNSPECIFIED DOSE), 3X/WEEK
  25. PREDNISONE. [Concomitant]
     Active Substance: PREDNISONE
     Dosage: ONE TABLET (5 MG), WEEKLY
  26. METHOTREXATE. [Concomitant]
     Active Substance: METHOTREXATE
     Dosage: 8 TABLETS OF 2.5MG (20 MG), WEEKLY
  27. METHOTREXATE. [Concomitant]
     Active Substance: METHOTREXATE
     Dosage: 8 TABLETS OF 2.5MG (20 MG), WEEKLY
  28. DEPURA [Concomitant]
     Active Substance: CHOLECALCIFEROL
     Dosage: 10 DROPS

REACTIONS (22)
  - Wrong technique in product usage process [Not Recovered/Not Resolved]
  - Asthenia [Unknown]
  - Menopausal symptoms [Recovered/Resolved]
  - Injection site haemorrhage [Unknown]
  - Bladder prolapse [Unknown]
  - Dyspnoea [Not Recovered/Not Resolved]
  - Abdominal pain upper [Not Recovered/Not Resolved]
  - Abdominal pain [Not Recovered/Not Resolved]
  - Muscle spasms [Unknown]
  - Somnolence [Unknown]
  - Sensitivity to weather change [Unknown]
  - Haemorrhoids [Not Recovered/Not Resolved]
  - Injection site discolouration [Not Recovered/Not Resolved]
  - Leiomyoma [Not Recovered/Not Resolved]
  - Anaemia [Unknown]
  - Uterine leiomyoma [Not Recovered/Not Resolved]
  - Condition aggravated [Not Recovered/Not Resolved]
  - Bladder disorder [Not Recovered/Not Resolved]
  - Gastritis [Not Recovered/Not Resolved]
  - Pain in extremity [Not Recovered/Not Resolved]
  - Venous injury [Unknown]
  - Condition aggravated [Not Recovered/Not Resolved]

NARRATIVE: CASE EVENT DATE: 201511
